FAERS Safety Report 24411305 (Version 5)
Quarter: 2025Q3

REPORT INFORMATION
  Report Type: Spontaneous
  Country: CR (occurrence: CR)
  Receive Date: 20241008
  Receipt Date: 20250903
  Transmission Date: 20251020
  Serious: Yes (Life-Threatening, Hospitalization, Other)
  Sender: SANDOZ
  Company Number: CR-002147023-NVSC2024CR029584

PATIENT
  Age: 52 Year
  Sex: Female

DRUGS (5)
  1. ANASTROZOLE [Suspect]
     Active Substance: ANASTROZOLE
     Indication: Product used for unknown indication
     Route: 065
  2. KISQALI [Suspect]
     Active Substance: RIBOCICLIB SUCCINATE
     Indication: Breast cancer metastatic
     Dosage: 600 MG, QD
     Route: 048
     Dates: start: 20230822
  3. KISQALI [Suspect]
     Active Substance: RIBOCICLIB SUCCINATE
     Dosage: 600 MG, QD
     Route: 048
     Dates: start: 20230912
  4. KISQALI [Suspect]
     Active Substance: RIBOCICLIB SUCCINATE
     Dosage: 600 MG, QD
     Route: 048
     Dates: start: 2023, end: 20250607
  5. TAMOXIFEN [Concomitant]
     Active Substance: TAMOXIFEN
     Indication: Breast cancer metastatic
     Dosage: UNK, QD
     Route: 048
     Dates: start: 2019, end: 2023

REACTIONS (37)
  - Second primary malignancy [Not Recovered/Not Resolved]
  - Gastric cancer [Not Recovered/Not Resolved]
  - Influenza [Unknown]
  - Neoplasm malignant [Not Recovered/Not Resolved]
  - Breast cancer recurrent [Unknown]
  - Hypokalaemia [Unknown]
  - Osteoporosis [Unknown]
  - Decreased immune responsiveness [Unknown]
  - Hunger [Unknown]
  - Wound [Recovering/Resolving]
  - Ocular discomfort [Unknown]
  - Eye pain [Recovered/Resolved]
  - Vision blurred [Unknown]
  - Spinal disorder [Unknown]
  - Fall [Unknown]
  - Limb injury [Unknown]
  - Illness [Unknown]
  - Dehydration [Unknown]
  - Stress [Unknown]
  - Dysphonia [Unknown]
  - Cough [Recovered/Resolved]
  - Weight decreased [Unknown]
  - Nasopharyngitis [Unknown]
  - Abdominal pain upper [Unknown]
  - Hordeolum [Unknown]
  - Anaemia [Unknown]
  - Decreased appetite [Unknown]
  - Fatigue [Unknown]
  - Vomiting [Unknown]
  - Asthenia [Unknown]
  - Nausea [Unknown]
  - Depression [Unknown]
  - Malaise [Unknown]
  - Musculoskeletal discomfort [Unknown]
  - Insomnia [Unknown]
  - Somnolence [Unknown]
  - Drug ineffective [Unknown]

NARRATIVE: CASE EVENT DATE: 20230901
